FAERS Safety Report 19710563 (Version 2)
Quarter: 2022Q2

REPORT INFORMATION
  Report Type: Spontaneous
  Country: GB (occurrence: GB)
  Receive Date: 20210817
  Receipt Date: 20220405
  Transmission Date: 20220721
  Serious: Yes (Life-Threatening, Hospitalization, Disabling, Other)
  Sender: FDA-Public Use
  Company Number: None

PATIENT
  Sex: Male
  Weight: 69.85 kg

DRUGS (1)
  1. CITALOPRAM HYDROBROMIDE [Suspect]
     Active Substance: CITALOPRAM HYDROBROMIDE
     Indication: Product used for unknown indication
     Dosage: UNK
     Route: 065

REACTIONS (6)
  - Blindness [Not Recovered/Not Resolved]
  - Medication error [Unknown]
  - Personality change [Unknown]
  - Heart rate abnormal [Unknown]
  - Dyspnoea [Unknown]
  - Hallucination [Unknown]

NARRATIVE: CASE EVENT DATE: 20160801
